FAERS Safety Report 10150086 (Version 1)
Quarter: 2014Q2

REPORT INFORMATION
  Report Type: Spontaneous
  Country: JP (occurrence: JP)
  Receive Date: 20140502
  Receipt Date: 20140502
  Transmission Date: 20141212
  Serious: Yes (Other)
  Sender: FDA-Public Use
  Company Number: JP-TEVA-478013ISR

PATIENT
  Sex: 0

DRUGS (2)
  1. MINOCYCLINE HYDROCHLORIDE INTRAVENOUS INFUSION 100MG ^TAIYO^ ,INJ,100M [Suspect]
     Route: 042
     Dates: start: 201403, end: 201403
  2. MINOCYCLINE HYDROCHLORIDE INTRAVENOUS INFUSION 100MG ^TAIYO^ ,INJ,100M [Suspect]
     Route: 042
     Dates: start: 20140421

REACTIONS (2)
  - Convulsion [Recovering/Resolving]
  - Altered state of consciousness [Not Recovered/Not Resolved]
